FAERS Safety Report 13447131 (Version 1)
Quarter: 2017Q2

REPORT INFORMATION
  Report Type: Spontaneous
  Country: US (occurrence: US)
  Receive Date: 20170415
  Receipt Date: 20170415
  Transmission Date: 20170830
  Serious: Yes (Life-Threatening, Hospitalization, Disabling, Other)
  Sender: FDA-Public Use
  Company Number: None

PATIENT
  Age: 56 Year
  Sex: Female
  Weight: 72 kg

DRUGS (4)
  1. CHLORDIAZEPOXIDE. [Suspect]
     Active Substance: CHLORDIAZEPOXIDE
     Indication: DRUG THERAPY
     Route: 048
     Dates: start: 20150708, end: 20160605
  2. WOMEN^S +50 MULTI-VITAMIN [Concomitant]
  3. ADVIL [Concomitant]
     Active Substance: IBUPROFEN
  4. LEVOTHYROXIN [Concomitant]
     Active Substance: LEVOTHYROXINE

REACTIONS (4)
  - Cerebrovascular accident [None]
  - Hypertension [None]
  - Tachycardia [None]
  - Depression [None]

NARRATIVE: CASE EVENT DATE: 20150708
